FAERS Safety Report 23303661 (Version 2)
Quarter: 2024Q1

REPORT INFORMATION
  Report Type: Report from Study
  Country: JP (occurrence: JP)
  Receive Date: 20231215
  Receipt Date: 20240220
  Transmission Date: 20240409
  Serious: Yes (Death, Other)
  Sender: FDA-Public Use
  Company Number: JP-BAUSCH-BL-2023-018302

PATIENT
  Age: 68 Year
  Sex: Male
  Weight: 65 kg

DRUGS (11)
  1. DEMSER [Suspect]
     Active Substance: METYROSINE
     Indication: Paraganglion neoplasm
     Route: 048
     Dates: start: 20230904, end: 20231016
  2. DEMSER [Suspect]
     Active Substance: METYROSINE
     Indication: Off label use
  3. CARDENALIN [Concomitant]
     Active Substance: DOXAZOSIN MESYLATE
     Indication: Product used for unknown indication
  4. TADALAFIL [Concomitant]
     Active Substance: TADALAFIL
     Indication: Product used for unknown indication
  5. SILODOSIN [Concomitant]
     Active Substance: SILODOSIN
     Indication: Product used for unknown indication
  6. CALONAL [Concomitant]
     Active Substance: ACETAMINOPHEN
     Indication: Product used for unknown indication
  7. MAGNESIUM OXIDE [Concomitant]
     Active Substance: MAGNESIUM OXIDE
     Indication: Product used for unknown indication
  8. SYMPROIC [Concomitant]
     Active Substance: NALDEMEDINE
     Indication: Product used for unknown indication
  9. AMITIZA [Concomitant]
     Active Substance: LUBIPROSTONE
     Indication: Product used for unknown indication
  10. MOVICOL [Concomitant]
     Active Substance: POLYETHYLENE GLYCOL 3350\POTASSIUM CHLORIDE\SODIUM BICARBONATE\SODIUM CHLORIDE
     Indication: Product used for unknown indication
  11. AZILSARTAN KAMEDOXOMIL [Concomitant]
     Active Substance: AZILSARTAN KAMEDOXOMIL
     Indication: Product used for unknown indication

REACTIONS (2)
  - Paraganglion neoplasm [Fatal]
  - Off label use [Unknown]

NARRATIVE: CASE EVENT DATE: 20230904
